FAERS Safety Report 4686477-5 (Version None)
Quarter: 2005Q2

REPORT INFORMATION
  Report Type: 
  Country: None (occurrence: None)
  Receive Date: 20050606
  Receipt Date: 20050524
  Transmission Date: 20051028
  Serious: Yes (Hospitalization, Other)
  Sender: FDA-Public Use
  Company Number: 2005079715

PATIENT
  Sex: Female
  Weight: 74.3899 kg

DRUGS (1)
  1. CELEBREX [Suspect]
     Indication: OSTEOARTHRITIS
     Dosage: 400 MG (200 MG, 2 IN 1 D), ORAL
     Route: 048

REACTIONS (4)
  - ALOPECIA [None]
  - HAIR COLOUR CHANGES [None]
  - HYPERCHLORHYDRIA [None]
  - OSTEOARTHRITIS [None]
